FAERS Safety Report 4515611-2 (Version None)
Quarter: 2004Q4

REPORT INFORMATION
  Report Type: 
  Country: None (occurrence: None)
  Receive Date: 20040930
  Receipt Date: 20040818
  Transmission Date: 20050328
  Serious: Yes (Hospitalization)
  Sender: FDA-Public Use
  Company Number: USA-2004-0016477

PATIENT
  Sex: Female

DRUGS (1)
  1. SPECTRACEF [Suspect]

REACTIONS (1)
  - CLOSTRIDIUM COLITIS [None]
